FAERS Safety Report 12856867 (Version 1)
Quarter: 2016Q4

REPORT INFORMATION
  Report Type: Spontaneous
  Country: US (occurrence: US)
  Receive Date: 20161018
  Receipt Date: 20161018
  Transmission Date: 20170207
  Serious: Yes (Other)
  Sender: FDA-Public Use
  Company Number: None

PATIENT
  Age: 1 Month
  Sex: Female

DRUGS (1)
  1. BABY TEETHING (HYLAND HOMEOPATHIC) [Suspect]
     Active Substance: HOMEOPATHICS
     Indication: TEETHING
     Dosage: ?          QUANTITY:1 TEASPOON(S);?
     Route: 048
     Dates: start: 20160405, end: 20161018

REACTIONS (2)
  - Gait disturbance [None]
  - Developmental delay [None]

NARRATIVE: CASE EVENT DATE: 20160914
